FAERS Safety Report 5714410-3 (Version None)
Quarter: 2008Q2

REPORT INFORMATION
  Report Type: 
  Country: None (occurrence: None)
  Receive Date: 20080423
  Receipt Date: 20010712
  Transmission Date: 20081010
  Serious: Yes (Death)
  Sender: FDA-Public Use
  Company Number: CH-ROCHE-264090

PATIENT
  Sex: Male

DRUGS (2)
  1. CAPECITABINE [Suspect]
     Indication: PANCREATIC CARCINOMA
     Dosage: TWO WEEKS TREATMENT FOLLOWED BY ONE WEEK REST.
     Route: 048
     Dates: start: 20010202, end: 20010517
  2. CREON [Concomitant]
     Dosage: FREQUENCY: DAILY
     Route: 048
     Dates: start: 20010131

REACTIONS (1)
  - DEATH [None]
